FAERS Safety Report 7270285-5 (Version None)
Quarter: 2011Q1

REPORT INFORMATION
  Report Type: 
  Country: None (occurrence: None)
  Receive Date: 20110202
  Receipt Date: 20110124
  Transmission Date: 20110831
  Serious: Yes (Death, Hospitalization, Other)
  Sender: FDA-Public Use
  Company Number: CA-PURDUE-CAN-2011-0001670

PATIENT
  Age: 67 Year
  Sex: Male
  Weight: 73.8 kg

DRUGS (12)
  1. HYDROMORPHONE HCL [Suspect]
     Indication: TUMOUR PAIN
     Dosage: UNK
     Dates: start: 20100521, end: 20100825
  2. LEVOTHYROXINE [Concomitant]
     Indication: HYPOTHYROIDISM
     Dosage: UNK
     Dates: start: 20080101
  3. DEXAMETHASONE [Concomitant]
     Indication: BONE PAIN
  4. HYDROMORPHONE HCL [Suspect]
     Dosage: 24 MG, BID
     Dates: start: 20100826, end: 20100830
  5. HYDROMORPHONE HCL [Suspect]
     Indication: TUMOUR PAIN
     Dosage: UNK
     Dates: start: 20100602, end: 20100824
  6. GABAPENTIN [Concomitant]
     Indication: TUMOUR PAIN
     Dosage: UNK
     Dates: start: 20100728
  7. CLONAZEPAM [Concomitant]
     Indication: ANXIETY
     Dosage: UNK
     Dates: start: 20100801
  8. FLOMAX                             /01280302/ [Concomitant]
     Indication: NOCTURIA
     Dosage: UNK
     Dates: start: 20100715
  9. INVESTIGATIONAL DRUG [Suspect]
     Indication: HEAD AND NECK CANCER
     Dosage: 30 MG, DAILY
     Route: 048
     Dates: start: 20100615, end: 20100825
  10. HYDROMORPHONE HCL [Suspect]
     Dosage: 36 MG, BID
     Dates: start: 20100824
  11. DEXAMETHASONE [Concomitant]
     Indication: DECREASED APPETITE
     Dosage: UNK
     Dates: start: 20100817
  12. MORPHINE SULFATE [Concomitant]
     Indication: TUMOUR PAIN
     Dosage: UNK

REACTIONS (7)
  - SOMNOLENCE [None]
  - RESTLESSNESS [None]
  - LIVEDO RETICULARIS [None]
  - SEPSIS [None]
  - PNEUMONIA ASPIRATION [None]
  - HYPOVENTILATION [None]
  - CONFUSIONAL STATE [None]
